FAERS Safety Report 9578643 (Version 1)
Quarter: 2013Q4

REPORT INFORMATION
  Report Type: Spontaneous
  Country: US (occurrence: US)
  Receive Date: 20131001
  Receipt Date: 20131001
  Transmission Date: 20140711
  Serious: No
  Sender: FDA-Public Use
  Company Number: US-AMGEN-USASP2013014290

PATIENT
  Age: 55 Year
  Sex: Female
  Weight: 68.03 kg

DRUGS (4)
  1. ENBREL [Suspect]
     Indication: PSORIASIS
     Dosage: 50 MG, EVERY WEEK
     Route: 058
  2. OMEPRAZOLE [Concomitant]
     Dosage: 10 MG, UNK
  3. MULTIVITAMINS, PLAIN [Concomitant]
     Dosage: UNK
  4. CALCIUM 500+D [Concomitant]
     Dosage: UNK

REACTIONS (1)
  - Nasopharyngitis [Unknown]
